FAERS Safety Report 17766005 (Version 2)
Quarter: 2020Q2

REPORT INFORMATION
  Report Type: Spontaneous
  Country: CN (occurrence: CN)
  Receive Date: 20200511
  Receipt Date: 20200520
  Transmission Date: 20200714
  Serious: Yes (Other)
  Sender: FDA-Public Use
  Company Number: CN-BAYER-2020-081904

PATIENT
  Age: 10 Year
  Sex: Male

DRUGS (2)
  1. LAROTRECTINIB [Suspect]
     Active Substance: LAROTRECTINIB
     Indication: PELVIC NEOPLASM
     Dosage: UNK
     Dates: start: 20200414
  2. LAROTRECTINIB [Suspect]
     Active Substance: LAROTRECTINIB
     Indication: PELVIC NEOPLASM
     Dosage: 25 MG, TID
     Route: 048
     Dates: start: 20200414

REACTIONS (5)
  - Vomiting [Recovering/Resolving]
  - Headache [Recovering/Resolving]
  - Dermatitis exfoliative [Not Recovered/Not Resolved]
  - Urticaria [None]
  - Nausea [Recovering/Resolving]

NARRATIVE: CASE EVENT DATE: 20200415
